FAERS Safety Report 8748231 (Version 2)
Quarter: 2012Q4

REPORT INFORMATION
  Report Type: 
  Country: US (occurrence: US)
  Receive Date: 20120827
  Receipt Date: 20121213
  Transmission Date: 20130627
  Serious: Yes (Other)
  Sender: FDA-Public Use
  Company Number: US-BAYER-2012-086263

PATIENT
  Age: 29 Year
  Sex: Female
  Weight: 127.89 kg

DRUGS (3)
  1. MIRENA [Suspect]
     Indication: CONTRACEPTION
     Dosage: 20 mcg/24hr, CONT
     Route: 015
     Dates: start: 20061101, end: 20121105
  2. MIRENA [Suspect]
     Indication: CONTRACEPTION
     Dosage: 20 mcg/24hr, CONT
     Route: 015
     Dates: start: 2007, end: 20121105
  3. MOTRIN [Concomitant]

REACTIONS (4)
  - Device dislocation [None]
  - Device dislocation [None]
  - Device misuse [None]
  - Device misuse [None]
